FAERS Safety Report 5481425-2 (Version None)
Quarter: 2007Q4

REPORT INFORMATION
  Report Type: 
  Country: None (occurrence: None)
  Receive Date: 20071010
  Receipt Date: 20071005
  Transmission Date: 20080405
  Serious: Yes (Hospitalization)
  Sender: FDA-Public Use
  Company Number: B0482136A

PATIENT
  Age: 67 Year
  Sex: Male

DRUGS (4)
  1. REQUIP [Suspect]
     Indication: PARKINSON'S DISEASE
     Route: 048
     Dates: start: 20070726
  2. TEGRETOL [Suspect]
     Indication: DRUG USE FOR UNKNOWN INDICATION
     Route: 048
  3. MADOPAR [Concomitant]
     Route: 048
  4. ARTANE [Concomitant]
     Route: 048

REACTIONS (3)
  - BLOOD PRESSURE DECREASED [None]
  - DIPLOPIA [None]
  - HYPERHIDROSIS [None]
